FAERS Safety Report 7903248-4 (Version None)
Quarter: 2011Q4

REPORT INFORMATION
  Report Type: 
  Country: None (occurrence: None)
  Receive Date: 20111107
  Receipt Date: 20111024
  Transmission Date: 20120403
  Serious: Yes (Hospitalization)
  Sender: FDA-Public Use
  Company Number: B0710191A

PATIENT
  Age: 4 Day
  Sex: Male

DRUGS (5)
  1. ZIDOVUDINE [Suspect]
     Indication: ANTIVIRAL PROPHYLAXIS
     Dosage: 2 MG/KG  / TWICE PER DAY / ORAL
     Route: 048
  2. ZIDOVUDINE [Suspect]
     Indication: HIV INFECTION
     Dosage: TRANSPLACENTARY
     Route: 064
  3. ABACAVIR SULFATE AND LAMIVUDINE [Suspect]
     Indication: HIV INFECTION
     Dosage: TRANSPLACENTARY
     Route: 064
  4. ATAZANAVIR [Suspect]
     Indication: URTICARIA
     Dosage: TRANSPLACENTARY
     Route: 064
  5. RITONAVIR [Suspect]
     Indication: HIV INFECTION
     Dosage: TRANSPLACENTARY
     Route: 064

REACTIONS (7)
  - ALANINE AMINOTRANSFERASE INCREASED [None]
  - BLOOD LACTIC ACID INCREASED [None]
  - INCORRECT DOSE ADMINISTERED [None]
  - SINUS BRADYCARDIA [None]
  - FOETAL EXPOSURE DURING PREGNANCY [None]
  - NEUTROPENIA NEONATAL [None]
  - ACIDOSIS [None]
